FAERS Safety Report 16856392 (Version 1)
Quarter: 2019Q3

REPORT INFORMATION
  Report Type: Report from Study
  Country: None (occurrence: DE)
  Receive Date: 20190926
  Receipt Date: 20190926
  Transmission Date: 20191005
  Serious: Yes (Death)
  Sender: FDA-Public Use
  Company Number: DE-ABBVIE-19K-062-2939896-00

PATIENT
  Age: 78 Year
  Sex: Female

DRUGS (1)
  1. DUODOPA [Suspect]
     Active Substance: CARBIDOPA\LEVODOPA
     Indication: PARKINSON^S DISEASE
     Dosage: MD 8ML; CRD 3.2ML/ H; ED 1ML; 20 MG/ML 5 MG/ML
     Route: 050
     Dates: start: 20180411

REACTIONS (1)
  - Death [Fatal]

NARRATIVE: CASE EVENT DATE: 20190524
